FAERS Safety Report 21936420 (Version 1)
Quarter: 2023Q1

REPORT INFORMATION
  Report Type: Report from Study
  Country: US (occurrence: US)
  Receive Date: 20230201
  Receipt Date: 20230201
  Transmission Date: 20230418
  Serious: No
  Sender: FDA-Public Use
  Company Number: US-INCYTE CORPORATION-2020IN008513

PATIENT

DRUGS (4)
  1. PEMIGATINIB [Suspect]
     Active Substance: PEMIGATINIB
     Indication: Cholangiocarcinoma
     Dosage: 13.5 MILLIGRAM (14 DAYS, THEN 7 DAYS BREAK)
     Route: 065
  2. PEMIGATINIB [Suspect]
     Active Substance: PEMIGATINIB
     Dosage: 13.5 MILLIGRAM
     Route: 048
     Dates: start: 20200811
  3. PEMIGATINIB [Suspect]
     Active Substance: PEMIGATINIB
     Dosage: 13.5 MILLIGRAM
     Route: 048
     Dates: start: 20200812
  4. PEMIGATINIB [Suspect]
     Active Substance: PEMIGATINIB
     Dosage: 9 MILLIGRAM
     Route: 048
     Dates: start: 20200811

REACTIONS (10)
  - Pain [Unknown]
  - Muscle spasms [Unknown]
  - Hyperaesthesia teeth [Unknown]
  - Dysuria [Unknown]
  - Abdominal pain upper [Unknown]
  - Malaise [Unknown]
  - Pain in extremity [Unknown]
  - Blood calcium increased [Unknown]
  - Vision blurred [Unknown]
  - Alopecia [Unknown]
